FAERS Safety Report 9636099 (Version 2)
Quarter: 2013Q4

REPORT INFORMATION
  Report Type: Spontaneous
  Country: US (occurrence: US)
  Receive Date: 20131021
  Receipt Date: 20131029
  Transmission Date: 20140711
  Serious: No
  Sender: FDA-Public Use
  Company Number: US-009507513-1310USA008669

PATIENT
  Age: 58 Year
  Sex: Female
  Weight: 67.57 kg

DRUGS (1)
  1. MIRALAX [Suspect]
     Indication: BOWEL PREPARATION
     Dosage: UNK, UNKNOWN
     Route: 048
     Dates: start: 20131009, end: 20131009

REACTIONS (3)
  - Off label use [Unknown]
  - Product quality issue [Unknown]
  - Wrong technique in drug usage process [Unknown]
